FAERS Safety Report 7130797-1 (Version None)
Quarter: 2010Q4

REPORT INFORMATION
  Report Type: 
  Country: None (occurrence: None)
  Receive Date: 20101201
  Receipt Date: 20101123
  Transmission Date: 20110411
  Serious: Yes (Other)
  Sender: FDA-Public Use
  Company Number: PHHY2010TR08371

PATIENT
  Sex: Female
  Weight: 51 kg

DRUGS (4)
  1. CERTICAN [Suspect]
     Indication: RENAL TRANSPLANT
     Dosage: 1.5 MG/DAY
     Route: 048
     Dates: start: 20091023
  2. DELTACORTRIL [Concomitant]
     Dosage: 5 MG
     Route: 048
  3. MYFORTIC [Concomitant]
     Dosage: 360 MG
     Route: 048
  4. DESFERAL [Concomitant]
     Dosage: 100 MG
     Route: 058

REACTIONS (2)
  - BLOOD CREATININE INCREASED [None]
  - THROMBOPHLEBITIS [None]
